FAERS Safety Report 22309998 (Version 1)
Quarter: 2023Q2

REPORT INFORMATION
  Report Type: Spontaneous
  Country: US (occurrence: None)
  Receive Date: 20230510
  Receipt Date: 20230510
  Transmission Date: 20230722
  Serious: Yes (Other)
  Sender: FDA-Public Use
  Company Number: None

PATIENT
  Sex: Male

DRUGS (1)
  1. NUCALA [Suspect]
     Active Substance: MEPOLIZUMAB
     Indication: Asthma
     Dosage: OTHER FREQUENCY : OTHER;?
     Route: 058
     Dates: start: 202107

REACTIONS (3)
  - Palpitations [None]
  - Chest pain [None]
  - Dyspnoea [None]
